FAERS Safety Report 5240284-3 (Version None)
Quarter: 2007Q1

REPORT INFORMATION
  Report Type: 
  Country: None (occurrence: None)
  Receive Date: 20070219
  Receipt Date: 20070206
  Transmission Date: 20070707
  Serious: Yes (Hospitalization, Other)
  Sender: FDA-Public Use
  Company Number: PHBS2006BR11688

PATIENT
  Age: 13 Year
  Sex: Female

DRUGS (2)
  1. TRILEPTAL [Suspect]
     Indication: EPILEPSY
     Dosage: 300 MG/D
     Route: 048
  2. TRILEPTAL [Suspect]
     Dosage: 600 MG/D

REACTIONS (6)
  - ABDOMINAL PAIN [None]
  - AGITATION [None]
  - ANOREXIA [None]
  - CONVULSION [None]
  - GASTRITIS [None]
  - NERVOUSNESS [None]
